FAERS Safety Report 14650248 (Version 3)
Quarter: 2018Q2

REPORT INFORMATION
  Report Type: Report from Study
  Country: US (occurrence: US)
  Receive Date: 20180316
  Receipt Date: 20180523
  Transmission Date: 20180711
  Serious: Yes (Other)
  Sender: FDA-Public Use
  Company Number: US-GILEAD-2018-0326057

PATIENT
  Age: 80 Year
  Sex: Female

DRUGS (8)
  1. ADCIRCA [Concomitant]
     Active Substance: TADALAFIL
  2. OMEPRAZOLE. [Concomitant]
     Active Substance: OMEPRAZOLE
  3. LOSARTAN. [Concomitant]
     Active Substance: LOSARTAN
  4. METOPROLOL. [Concomitant]
     Active Substance: METOPROLOL
  5. AMBRISENTAN [Suspect]
     Active Substance: AMBRISENTAN
     Indication: PRODUCT USED FOR UNKNOWN INDICATION
     Dosage: 10 MG, UNK
     Route: 065
     Dates: start: 20150630
  6. FUROSEMIDE. [Concomitant]
     Active Substance: FUROSEMIDE
  7. OXYGEN. [Concomitant]
     Active Substance: OXYGEN
  8. WARFARIN [Concomitant]
     Active Substance: WARFARIN

REACTIONS (6)
  - Cataract [Unknown]
  - Dyspnoea [Not Recovered/Not Resolved]
  - Rash [Unknown]
  - Muscular weakness [Not Recovered/Not Resolved]
  - Wheezing [Not Recovered/Not Resolved]
  - Eye operation [Unknown]
